FAERS Safety Report 9478350 (Version 1)
Quarter: 2013Q3

REPORT INFORMATION
  Report Type: Report from Study
  Country: CA (occurrence: CA)
  Receive Date: 20130827
  Receipt Date: 20130827
  Transmission Date: 20140515
  Serious: Yes (Other)
  Sender: FDA-Public Use
  Company Number: CA-JNJFOC-20130812467

PATIENT
  Age: 22 Year
  Sex: Male
  Weight: 61.24 kg

DRUGS (1)
  1. REMICADE [Suspect]
     Indication: COLITIS ULCERATIVE
     Dosage: CONFLICTINGLY REPORTED LAST DOSE WAS ON 02-JUL-2013
     Route: 042
     Dates: start: 201305, end: 20130701

REACTIONS (1)
  - Colectomy [Unknown]
